FAERS Safety Report 7125334-1 (Version None)
Quarter: 2010Q4

REPORT INFORMATION
  Report Type: 
  Country: None (occurrence: None)
  Receive Date: 20101115
  Receipt Date: 20101029
  Transmission Date: 20110411
  Serious: Yes (Hospitalization)
  Sender: FDA-Public Use
  Company Number: IPC201010-000286

PATIENT
  Age: 74 Year
  Sex: Female

DRUGS (4)
  1. HYDROCHLOROTHIAZIDE [Suspect]
     Indication: HYPERTENSION
     Dosage: 12.5MG, ORAL
     Route: 048
     Dates: start: 20080130
  2. VALSARTAN [Suspect]
     Indication: HYPERTENSION
     Dosage: 160 MG PER DAY, ORAL
     Route: 048
     Dates: start: 20080130
  3. BISOPROLOL [Concomitant]
  4. ASPIRIN [Concomitant]

REACTIONS (7)
  - ACIDOSIS [None]
  - BLOOD PRESSURE DECREASED [None]
  - HYPERCHOLESTEROLAEMIA [None]
  - HYPOVOLAEMIA [None]
  - LEFT VENTRICULAR HYPERTROPHY [None]
  - PULMONARY OEDEMA [None]
  - RENAL FAILURE ACUTE [None]
